FAERS Safety Report 5849746-9 (Version None)
Quarter: 2008Q3

REPORT INFORMATION
  Report Type: 
  Country: None (occurrence: None)
  Receive Date: 20080731
  Receipt Date: 20080512
  Transmission Date: 20090109
  Serious: No
  Sender: FDA-Public Use
  Company Number: US200804001152

PATIENT
  Age: 69 Year
  Sex: Female
  Weight: 89.8 kg

DRUGS (8)
  1. BYETTA [Suspect]
     Indication: TYPE 2 DIABETES MELLITUS
     Dosage: 5 UG, DAILY (1/D), SUBCUTANEOUS : 5 UG, 2/D, SUBCUTANEOUS
     Route: 058
     Dates: start: 20080301, end: 20080501
  2. BYETTA [Suspect]
     Indication: TYPE 2 DIABETES MELLITUS
     Dosage: 5 UG, DAILY (1/D), SUBCUTANEOUS : 5 UG, 2/D, SUBCUTANEOUS
     Route: 058
     Dates: start: 20080502
  3. GLYBURIDE [Concomitant]
  4. ADVAIR DISKUS 100/50 [Concomitant]
  5. SINGULAIR [Concomitant]
  6. COMBIVENT (IPRATROPIUM BROMIDE, SALBUTAMOL) [Concomitant]
  7. GLIPIZIDE [Concomitant]
  8. PLAVIX [Concomitant]

REACTIONS (4)
  - ASTHMA [None]
  - COUGH [None]
  - NAUSEA [None]
  - WEIGHT DECREASED [None]
